FAERS Safety Report 13143683 (Version 1)
Quarter: 2017Q1

REPORT INFORMATION
  Report Type: Spontaneous
  Country: US (occurrence: US)
  Receive Date: 20170124
  Receipt Date: 20170124
  Transmission Date: 20170428
  Serious: No
  Sender: FDA-Public Use
  Company Number: US-BAUSCH-BL-2016-023606

PATIENT
  Age: 68 Year
  Sex: Female

DRUGS (2)
  1. EQUATE EYE ITCH RELIEF [Suspect]
     Active Substance: KETOTIFEN FUMARATE
     Indication: PROPHYLAXIS
     Dosage: AS NEEDED, AT NIGHT TIME
     Route: 065
     Dates: start: 20160914, end: 20160916
  2. EQUATE EYE ITCH RELIEF [Suspect]
     Active Substance: KETOTIFEN FUMARATE
     Indication: DRY EYE

REACTIONS (2)
  - Pain [Recovered/Resolved]
  - Eye irritation [Recovered/Resolved]

NARRATIVE: CASE EVENT DATE: 20160914
